FAERS Safety Report 7659159-5 (Version None)
Quarter: 2011Q3

REPORT INFORMATION
  Report Type: 
  Country: None (occurrence: None)
  Receive Date: 20110805
  Receipt Date: 20110801
  Transmission Date: 20111222
  Serious: Yes (Hospitalization)
  Sender: FDA-Public Use
  Company Number: FR-GLAXOSMITHKLINE-B0736216A

PATIENT
  Sex: Male

DRUGS (10)
  1. RAMIPRIL [Concomitant]
     Dosage: 10MG PER DAY
     Route: 065
     Dates: start: 20031101
  2. OMEPRAZOLE [Concomitant]
     Dosage: 20MG TWICE PER DAY
     Route: 065
  3. ZOVIRAX [Suspect]
     Indication: PRODUCT USED FOR UNKNOWN INDICATION
     Dosage: 800MG THREE TIMES PER DAY
     Route: 042
     Dates: start: 20110513, end: 20110519
  4. BISOPROLOL FUMARATE [Concomitant]
     Dosage: 10MG PER DAY
     Route: 065
     Dates: start: 20031101
  5. RAMIPRIL [Concomitant]
  6. BISOPROLOL FUMARATE [Concomitant]
  7. LERCANIDIPINE [Concomitant]
  8. OMEPRAZOLE [Concomitant]
  9. LERCANIDIPINE [Concomitant]
     Dosage: 20MG PER DAY
     Route: 065
     Dates: start: 20070801
  10. ULTRAVIST 150 [Suspect]
     Indication: COMPUTERISED TOMOGRAM
     Route: 042
     Dates: start: 20110514, end: 20110514

REACTIONS (1)
  - RENAL TUBULAR NECROSIS [None]
